FAERS Safety Report 11391194 (Version 1)
Quarter: 2015Q3

REPORT INFORMATION
  Report Type: Report from Study
  Country: JP (occurrence: JP)
  Receive Date: 20150818
  Receipt Date: 20150818
  Transmission Date: 20151125
  Serious: Yes (Hospitalization)
  Sender: FDA-Public Use
  Company Number: JP-JNJFOC-20150809135

PATIENT
  Age: 53 Year
  Sex: Male

DRUGS (13)
  1. NORVIR [Suspect]
     Active Substance: RITONAVIR
     Indication: HIV INFECTION
     Route: 048
     Dates: start: 20140822
  2. PREZISTA [Concomitant]
     Active Substance: DARUNAVIR ETHANOLATE
     Indication: HIV INFECTION
     Route: 048
     Dates: start: 20140822
  3. DIFLUCAN [Concomitant]
     Active Substance: FLUCONAZOLE
     Indication: MENINGITIS CRYPTOCOCCAL
     Route: 048
     Dates: start: 20140708
  4. EPZICOM [Concomitant]
     Active Substance: ABACAVIR SULFATE\LAMIVUDINE
     Indication: HIV INFECTION
     Route: 048
     Dates: start: 20140220, end: 20140305
  5. FEBURIC [Concomitant]
     Active Substance: FEBUXOSTAT
     Indication: HYPERURICAEMIA
     Route: 048
     Dates: start: 20150203
  6. CELESTAMINE (BETAMETHASONE/CHLORPHENAMINE) [Concomitant]
     Indication: RASH
     Route: 048
     Dates: start: 20140729, end: 20150106
  7. ITRIZOLE [Concomitant]
     Active Substance: ITRACONAZOLE
     Indication: MENINGITIS CRYPTOCOCCAL
     Dates: start: 20140513, end: 20140707
  8. TRUVADA [Suspect]
     Active Substance: EMTRICITABINE\TENOFOVIR DISOPROXIL FUMARATE
     Indication: HIV INFECTION
     Route: 048
     Dates: start: 20140320, end: 20140722
  9. ITRIZOLE [Concomitant]
     Active Substance: ITRACONAZOLE
     Indication: MENINGITIS CRYPTOCOCCAL
     Dates: start: 20140422, end: 20140512
  10. VFEND [Concomitant]
     Active Substance: VORICONAZOLE
     Indication: MENINGITIS CRYPTOCOCCAL
     Route: 048
     Dates: start: 20140310, end: 20140422
  11. CELESTAMINE (BETAMETHASONE/CHLORPHENAMINE) [Concomitant]
     Indication: RASH
     Route: 048
     Dates: start: 20150107, end: 20150303
  12. EDURANT [Suspect]
     Active Substance: RILPIVIRINE HYDROCHLORIDE
     Indication: HIV INFECTION
     Route: 048
     Dates: start: 20140127, end: 20140821
  13. ISENTRESS [Concomitant]
     Active Substance: RALTEGRAVIR POTASSIUM
     Indication: HIV INFECTION
     Route: 048
     Dates: start: 20140220, end: 20140305

REACTIONS (3)
  - Dysgeusia [Recovered/Resolved]
  - Rash [Not Recovered/Not Resolved]
  - Hepatic function abnormal [Recovering/Resolving]

NARRATIVE: CASE EVENT DATE: 201405
